FAERS Safety Report 17889870 (Version 9)
Quarter: 2021Q2

REPORT INFORMATION
  Report Type: Spontaneous
  Country: US (occurrence: US)
  Receive Date: 20200612
  Receipt Date: 20210531
  Transmission Date: 20210717
  Serious: Yes (Other)
  Sender: FDA-Public Use
  Company Number: US-GLAXOSMITHKLINE-US2020AMR098896

PATIENT
  Sex: Female

DRUGS (7)
  1. ZEJULA [Suspect]
     Active Substance: NIRAPARIB
     Dosage: 300 MG, QD
  2. ZEJULA [Suspect]
     Active Substance: NIRAPARIB
     Dosage: 200 MG, QD
     Route: 048
     Dates: start: 20210414
  3. ZEJULA [Suspect]
     Active Substance: NIRAPARIB
     Indication: OVARIAN CANCER
     Dosage: 300 MG, QD
     Route: 048
     Dates: start: 20200511
  4. ZEJULA [Suspect]
     Active Substance: NIRAPARIB
     Dosage: 300 MG, QD
     Route: 048
     Dates: start: 20200501
  5. ZEJULA [Suspect]
     Active Substance: NIRAPARIB
     Dosage: 300 MG, QD
     Dates: start: 20200511
  6. ZEJULA [Suspect]
     Active Substance: NIRAPARIB
     Dosage: 200 MG, QD
     Dates: start: 20200511
  7. ZEJULA [Suspect]
     Active Substance: NIRAPARIB
     Dosage: 300 MG, QD
     Route: 048

REACTIONS (27)
  - Alanine aminotransferase increased [Recovered/Resolved]
  - Hormone level abnormal [Unknown]
  - White blood cell count decreased [Not Recovered/Not Resolved]
  - Blood pressure increased [Unknown]
  - Heart rate increased [Unknown]
  - Aspartate aminotransferase increased [Recovered/Resolved]
  - Depression [Unknown]
  - Dyspnoea exertional [Recovering/Resolving]
  - Neutrophil count decreased [Not Recovered/Not Resolved]
  - Neuropathy peripheral [Unknown]
  - Gastrointestinal fungal infection [Unknown]
  - Fatigue [Unknown]
  - Nausea [Unknown]
  - Memory impairment [Unknown]
  - Lacrimation increased [Not Recovered/Not Resolved]
  - Blood cholesterol increased [Unknown]
  - Flatulence [Unknown]
  - Peripheral swelling [Not Recovered/Not Resolved]
  - Ocular discomfort [Unknown]
  - Laboratory test abnormal [Unknown]
  - Dysgeusia [Unknown]
  - Feeling hot [Unknown]
  - Hypoaesthesia [Not Recovered/Not Resolved]
  - Blood alkaline phosphatase increased [Not Recovered/Not Resolved]
  - Alopecia [Unknown]
  - Constipation [Unknown]
  - Haemoglobin decreased [Unknown]
